FAERS Safety Report 8359307-8 (Version None)
Quarter: 2012Q2

REPORT INFORMATION
  Report Type: 
  Country: None (occurrence: None)
  Receive Date: 20120514
  Receipt Date: 20120514
  Transmission Date: 20120825
  Serious: Yes (Hospitalization)
  Sender: FDA-Public Use
  Company Number: None

PATIENT
  Sex: Male
  Weight: 32.6 kg

DRUGS (5)
  1. DEXAMETHASONE [Suspect]
     Dosage: 555 MG
  2. VINCRISTINE SULFATE [Suspect]
     Dosage: 3.4 MG
  3. PEG-L- ASPARAGINASE (K-H) [Suspect]
     Dosage: 5750 MG
  4. CYTARABINE [Suspect]
     Dosage: 70 MG
  5. DOXORUBICIN HYDROCHLORIDE [Suspect]
     Dosage: 68 MG

REACTIONS (2)
  - STAPHYLOCOCCAL INFECTION [None]
  - BLOOD CULTURE POSITIVE [None]
